FAERS Safety Report 4992764-3 (Version None)
Quarter: 2006Q2

REPORT INFORMATION
  Report Type: 
  Country: None (occurrence: None)
  Receive Date: 20060504
  Receipt Date: 20050408
  Transmission Date: 20061013
  Serious: Yes (Hospitalization, Congenital Anomaly)
  Sender: FDA-Public Use
  Company Number: FR-ABBOTT-05P-056-0296970-00

PATIENT
  Sex: Female

DRUGS (1)
  1. DEPAKENE [Suspect]
     Indication: DRUG EXPOSURE DURING PREGNANCY

REACTIONS (26)
  - BODY TEMPERATURE FLUCTUATION [None]
  - CAMPTODACTYLY CONGENITAL [None]
  - CHROMOSOME ABNORMALITY [None]
  - CLEFT PALATE [None]
  - CONGENITAL ANOMALY [None]
  - CONGENITAL CENTRAL NERVOUS SYSTEM ANOMALY [None]
  - CONGENITAL EYE DISORDER [None]
  - CONGENITAL EYELID MALFORMATION [None]
  - CONGENITAL FOOT MALFORMATION [None]
  - CONGENITAL HAIR DISORDER [None]
  - CONGENITAL MUSCULOSKELETAL ANOMALY [None]
  - CONVULSION [None]
  - DEAFNESS BILATERAL [None]
  - DEVELOPMENTAL DELAY [None]
  - EAR MALFORMATION [None]
  - ENCEPHALOPATHY [None]
  - FACIAL DYSMORPHISM [None]
  - HYPERTELORISM OF ORBIT [None]
  - HYPOTONIA [None]
  - LOW SET EARS [None]
  - MICROSTOMIA [None]
  - NUCLEAR MAGNETIC RESONANCE IMAGING BRAIN ABNORMAL [None]
  - POOR SUCKING REFLEX [None]
  - SPEECH DISORDER DEVELOPMENTAL [None]
  - TACHYPNOEA [None]
  - TALIPES [None]
